FAERS Safety Report 8972850 (Version 4)
Quarter: 2025Q3

REPORT INFORMATION
  Report Type: Report from Study
  Country: EU (occurrence: EU)
  Receive Date: 20121218
  Receipt Date: 20250811
  Transmission Date: 20251020
  Serious: Yes (Death, Hospitalization, Other)
  Sender: ROCHE
  Company Number: None

PATIENT
  Age: 65 Year
  Sex: Male
  Weight: 84.0 kg

DRUGS (7)
  1. RITUXIMAB [Suspect]
     Active Substance: RITUXIMAB
     Indication: Rheumatoid arthritis
     Route: 042
     Dates: start: 20070206, end: 20070206
  2. RITUXIMAB [Suspect]
     Active Substance: RITUXIMAB
     Route: 042
     Dates: start: 20070220, end: 20070220
  3. PREDNISONE [Suspect]
     Active Substance: PREDNISONE
     Indication: Rheumatoid arthritis
     Dosage: 20 MG, QD
     Route: 048
  4. NOVATREX (AZITHROMYCIN) [Suspect]
     Active Substance: AZITHROMYCIN DIHYDRATE
     Indication: Rheumatoid arthritis
     Dosage: 10 MG, 1/WEEK
     Route: 048
     Dates: start: 20060120, end: 20070127
  5. NEORAL [Suspect]
     Active Substance: CYCLOSPORINE
     Indication: Rheumatoid arthritis
     Dosage: 140 MG, BID
     Route: 048
     Dates: start: 20051110
  6. RAMIPRIL [Concomitant]
     Active Substance: RAMIPRIL
     Indication: Product used for unknown indication
  7. GLUCOPHAGE [Concomitant]
     Active Substance: METFORMIN HYDROCHLORIDE

REACTIONS (5)
  - Metastatic carcinoma of the bladder [Fatal]
  - Bacterial pyelonephritis [Fatal]
  - Bladder cancer [Recovered/Resolved with Sequelae]
  - Bladder cancer recurrent [Not Recovered/Not Resolved]
  - Escherichia pyelonephritis [Recovered/Resolved]

NARRATIVE: CASE EVENT DATE: 20070306
